FAERS Safety Report 9140866 (Version 2)
Quarter: 2013Q1

REPORT INFORMATION
  Report Type: Report from Study
  Country: CZ (occurrence: CZ)
  Receive Date: 20130305
  Receipt Date: 20130314
  Transmission Date: 20140127
  Serious: Yes (Death, Other)
  Sender: FDA-Public Use
  Company Number: CZ-ACTELION-A-CH2013-80040

PATIENT
  Age: 32 Year
  Sex: Female
  Weight: 44 kg

DRUGS (1)
  1. ZAVESCA [Suspect]
     Indication: NIEMANN-PICK DISEASE
     Dosage: UNK MG, UNK
     Route: 048
     Dates: start: 20110901, end: 201212

REACTIONS (8)
  - Niemann-Pick disease [Fatal]
  - Condition aggravated [Fatal]
  - Cardiac failure [Fatal]
  - Depressed level of consciousness [Fatal]
  - Infection [Unknown]
  - Asthenia [Unknown]
  - Dystonia [Unknown]
  - Bulbar palsy [Unknown]
